FAERS Safety Report 14432489 (Version 1)
Quarter: 2018Q1

REPORT INFORMATION
  Report Type: Spontaneous
  Country: US (occurrence: US)
  Receive Date: 20180124
  Receipt Date: 20180124
  Transmission Date: 20180509
  Serious: No
  Sender: FDA-Public Use
  Company Number: US-AMNEAL PHARMACEUTICALS-2017AMN00928

PATIENT
  Age: 40 Year
  Sex: Male
  Weight: 136.5 kg

DRUGS (3)
  1. OXYCODONE AND ACETAMINOPHEN [Suspect]
     Active Substance: ACETAMINOPHEN\OXYCODONE HYDROCHLORIDE
     Indication: BACK PAIN
     Dosage: UNK
     Dates: start: 20170926
  2. NAPROXEN TABLETS [Concomitant]
     Active Substance: NAPROXEN
  3. GABAPENTIN TABLETS [Concomitant]
     Active Substance: GABAPENTIN

REACTIONS (3)
  - Drug ineffective [Not Recovered/Not Resolved]
  - Headache [Not Recovered/Not Resolved]
  - Head discomfort [Not Recovered/Not Resolved]

NARRATIVE: CASE EVENT DATE: 20170926
